FAERS Safety Report 8597904-5 (Version None)
Quarter: 2012Q3

REPORT INFORMATION
  Report Type: 
  Country: None (occurrence: None)
  Receive Date: 20120816
  Receipt Date: 20120807
  Transmission Date: 20120928
  Serious: Yes (Hospitalization, Other)
  Sender: FDA-Public Use
  Company Number: US-BAYER-2012-038150

PATIENT
  Age: 28 Year
  Sex: Female
  Weight: 74.83 kg

DRUGS (5)
  1. APIDRA [Concomitant]
     Dosage: SLIDING SCALE USE WITH MEALS
  2. DROSPIRENONE AND ETHINYL ESTRADIOL [Suspect]
     Dosage: UNK
     Dates: start: 20060101, end: 20080101
  3. LANTUS [Concomitant]
     Indication: DIABETES MELLITUS
     Dosage: 27 UNITS AT NIGHT
  4. REGULAR INSULIN [Concomitant]
  5. YASMIN [Suspect]
     Dosage: UNK
     Dates: start: 20060101, end: 20080101

REACTIONS (12)
  - ANXIETY [None]
  - NAUSEA [None]
  - GALLBLADDER INJURY [None]
  - BILIARY DYSKINESIA [None]
  - INJURY [None]
  - GENERAL PHYSICAL HEALTH DETERIORATION [None]
  - EMOTIONAL DISTRESS [None]
  - POST PROCEDURAL BILE LEAK [None]
  - PAIN [None]
  - ABDOMINAL PAIN UPPER [None]
  - MUSCULOSKELETAL PAIN [None]
  - PAIN IN EXTREMITY [None]
